FAERS Safety Report 7910144-5 (Version None)
Quarter: 2011Q4

REPORT INFORMATION
  Report Type: 
  Country: None (occurrence: None)
  Receive Date: 20111111
  Receipt Date: 20111104
  Transmission Date: 20120403
  Serious: Yes (Hospitalization)
  Sender: FDA-Public Use
  Company Number: US-BAYER-2011-107937

PATIENT
  Age: 76 Year
  Sex: Male

DRUGS (7)
  1. SILODOSIN [Concomitant]
  2. METOPROLOL [Concomitant]
  3. ASPIRIN [Concomitant]
  4. FISH OIL [Concomitant]
  5. STAXYN [Suspect]
     Indication: ERECTILE DYSFUNCTION
     Dosage: UNK
     Dates: start: 20111019
  6. MULTI-VITAMIN [Concomitant]
  7. LEVITRA [Suspect]
     Indication: ERECTILE DYSFUNCTION
     Dosage: 20 MG, PRN
     Dates: start: 20111009, end: 20111029

REACTIONS (5)
  - DYSARTHRIA [None]
  - ERECTILE DYSFUNCTION [None]
  - DISORIENTATION [None]
  - BLOOD PRESSURE DECREASED [None]
  - TINNITUS [None]
